FAERS Safety Report 12900303 (Version 2)
Quarter: 2016Q4

REPORT INFORMATION
  Report Type: Report from Study
  Country: FR (occurrence: FR)
  Receive Date: 20161101
  Receipt Date: 20161104
  Transmission Date: 20170207
  Serious: Yes (Death, Other)
  Sender: FDA-Public Use
  Company Number: PHHY2016FR148691

PATIENT

DRUGS (10)
  1. PIPERACILLIN SODIUM [Concomitant]
     Active Substance: PIPERACILLIN SODIUM
     Indication: PRODUCT USED FOR UNKNOWN INDICATION
     Route: 065
  2. BARACLUDE [Concomitant]
     Active Substance: ENTECAVIR
     Indication: HEPATITIS B
     Dosage: UNK
     Route: 048
     Dates: start: 20150203
  3. SOLU-MEDROL [Concomitant]
     Active Substance: METHYLPREDNISOLONE SODIUM SUCCINATE
     Indication: PRODUCT USED FOR UNKNOWN INDICATION
     Route: 065
  4. ZELITREX [Concomitant]
     Active Substance: VALACYCLOVIR HYDROCHLORIDE
     Indication: ANTIVIRAL PROPHYLAXIS
     Dosage: 0.5 MG, BID
     Route: 048
     Dates: start: 20150203
  5. BARACLUDE [Concomitant]
     Active Substance: ENTECAVIR
     Dosage: 0.5 MG, QD
     Route: 048
  6. CICLOSPORIN [Suspect]
     Active Substance: CYCLOSPORINE
     Indication: APLASTIC ANAEMIA
     Dosage: 2.5 MG/KG, BID
     Route: 065
  7. POLARAMINE [Concomitant]
     Active Substance: DEXCHLORPHENIRAMINE MALEATE
     Indication: PRODUCT USED FOR UNKNOWN INDICATION
     Route: 065
  8. NO TREATMENT RECEIVED [Suspect]
     Active Substance: UNSPECIFIED INGREDIENT
     Indication: PRODUCT USED FOR UNKNOWN INDICATION
     Route: 065
  9. ATGAM [Suspect]
     Active Substance: EQUINE THYMOCYTE IMMUNE GLOBULIN
     Indication: APLASTIC ANAEMIA
     Dosage: 3100 MG, QD
     Route: 042
     Dates: start: 20150220, end: 20160223
  10. TAZOBACTAM SODIUM [Concomitant]
     Active Substance: TAZOBACTAM SODIUM
     Indication: NEUTROPENIA
     Dosage: 4 G, TID
     Route: 042
     Dates: start: 20150216

REACTIONS (9)
  - Human herpesvirus 6 infection [Recovering/Resolving]
  - Chills [Recovered/Resolved]
  - Hypertension [Recovered/Resolved]
  - Product use issue [Unknown]
  - Kaposi^s sarcoma [Not Recovered/Not Resolved]
  - General physical health deterioration [Fatal]
  - Infusion site reaction [Recovered/Resolved]
  - Pyrexia [Recovered/Resolved]
  - Hepatitis viral [Recovering/Resolving]

NARRATIVE: CASE EVENT DATE: 20150220
